FAERS Safety Report 7655278-8 (Version None)
Quarter: 2011Q3

REPORT INFORMATION
  Report Type: 
  Country: None (occurrence: None)
  Receive Date: 20110728
  Receipt Date: 20110715
  Transmission Date: 20111222
  Serious: Yes (Other)
  Sender: FDA-Public Use
  Company Number: 2009BI017626

PATIENT
  Age: 43 Year
  Sex: Female

DRUGS (6)
  1. ZEVALIN [Suspect]
     Indication: EXTRANODAL MARGINAL ZONE B-CELL LYMPHOMA (MALT TYPE) STAGE IV
     Dosage: 903 MBQ,1X, IV
     Route: 042
     Dates: start: 20081111, end: 20081111
  2. ZEVALIN (IBUTUMOMAB TIUXETAN) [Suspect]
     Indication: EXTRANODAL MARGINAL ZONE B-CELL LYMPHOMA (MALT TYPE) STAGE IV
     Dosage: 130 MBQ, 1X,IV
     Route: 042
     Dates: start: 20081104, end: 20081104
  3. RITUXIMAB (RITUXIMAB) [Suspect]
     Dosage: 250 MG/M2, 1X, IV DRIP
     Route: 041
     Dates: start: 20081104, end: 20081104
  4. LOXONIN [Concomitant]
  5. RITUXIMAB (RITUXIMAB) [Suspect]
     Indication: EXTRANODAL MARGINAL ZONE B-CELL LYMPHOMA (MALT TYPE) STAGE IV
     Dosage: 250 M/M2, 1X, IV DRIP
     Route: 041
     Dates: start: 20081111, end: 20081111
  6. POLARAMINE [Concomitant]

REACTIONS (2)
  - BONE MARROW FAILURE [None]
  - UPPER RESPIRATORY TRACT INFLAMMATION [None]
